FAERS Safety Report 19675945 (Version 1)
Quarter: 2021Q3

REPORT INFORMATION
  Report Type: Report from Study
  Country: TR (occurrence: TR)
  Receive Date: 20210809
  Receipt Date: 20210809
  Transmission Date: 20211014
  Serious: Yes (Death, Other)
  Sender: FDA-Public Use
  Company Number: TR-PFIZER INC-2021527462

PATIENT
  Age: 82 Year
  Sex: Male

DRUGS (1)
  1. GLASDEGIB [Suspect]
     Active Substance: GLASDEGIB

REACTIONS (4)
  - Acute kidney injury [Unknown]
  - Transaminases increased [Unknown]
  - Pneumonia [Fatal]
  - Blood creatinine increased [Unknown]
